APPROVED DRUG PRODUCT: GLYSET
Active Ingredient: MIGLITOL
Strength: 25MG
Dosage Form/Route: TABLET;ORAL
Application: N020682 | Product #001
Applicant: PFIZER INC
Approved: Dec 18, 1996 | RLD: Yes | RS: No | Type: DISCN